FAERS Safety Report 4638045-9 (Version None)
Quarter: 2005Q2

REPORT INFORMATION
  Report Type: 
  Country: None (occurrence: None)
  Receive Date: 20050415
  Receipt Date: 20050328
  Transmission Date: 20051028
  Serious: Yes (Other)
  Sender: FDA-Public Use
  Company Number: 2005001335

PATIENT
  Age: 42 Year
  Sex: Female
  Weight: 47.6277 kg

DRUGS (5)
  1. DEPO-PROVERA [Suspect]
     Indication: ILL-DEFINED DISORDER
     Dosage: 150 MG (150 MG, 1ST INJECTION), INTRAMUSCULAR- SEE IMAGE
     Route: 030
     Dates: start: 19941101, end: 19941101
  2. DEPO-PROVERA [Suspect]
     Indication: ILL-DEFINED DISORDER
     Dosage: 150 MG (150 MG, 1ST INJECTION), INTRAMUSCULAR- SEE IMAGE
     Route: 030
     Dates: start: 20041025, end: 20041025
  3. FLUTICASONE PROPIONATE [Concomitant]
  4. IBUPROFEN [Concomitant]
  5. ETODOLAC [Concomitant]

REACTIONS (9)
  - ASTHMA [None]
  - BACK PAIN [None]
  - BRONCHOSPASM [None]
  - CHRONIC SINUSITIS [None]
  - MULTIPLE ALLERGIES [None]
  - NASAL CYST [None]
  - RHINITIS ALLERGIC [None]
  - SELECTIVE IGA IMMUNODEFICIENCY [None]
  - TYMPANIC MEMBRANE PERFORATION [None]
